FAERS Safety Report 25606647 (Version 1)
Quarter: 2025Q3

REPORT INFORMATION
  Report Type: Spontaneous
  Country: US (occurrence: None)
  Receive Date: 20250724
  Receipt Date: 20250724
  Transmission Date: 20251020
  Serious: Yes (Life-Threatening, Hospitalization, Disabling)
  Sender: FDA-CTU
  Company Number: None

PATIENT

DRUGS (1)
  1. EPCLUSA [Suspect]
     Active Substance: SOFOSBUVIR\VELPATASVIR
     Indication: Hepatitis
     Route: 048

REACTIONS (3)
  - Aneurysm ruptured [None]
  - Fat tissue increased [None]
  - Arteriosclerosis [None]

NARRATIVE: CASE EVENT DATE: 20250723
